FAERS Safety Report 8709945 (Version 5)
Quarter: 2012Q4

REPORT INFORMATION
  Report Type: 
  Country: DE (occurrence: DE)
  Receive Date: 20120806
  Receipt Date: 20121203
  Transmission Date: 20130627
  Serious: Yes (Hospitalization, Other)
  Sender: FDA-Public Use
  Company Number: DE-BAXTER-2012BAX013006

PATIENT
  Age: 81 Year
  Sex: Male
  Weight: 87 kg

DRUGS (4)
  1. ADVATE  250 I.E. [Suspect]
     Indication: HEMOPHILIA A
     Dosage: 2000-4000 IU
     Route: 042
     Dates: start: 20120601, end: 20120704
  2. ADVATE  250 I.E. [Suspect]
     Indication: ARTHROCENTESIS
     Dates: start: 200610
  3. ADVATE  250 I.E. [Suspect]
     Indication: KNEE PROSTHESIS INSERTION
     Dosage: 2000-4000 IU
     Route: 042
     Dates: start: 201205, end: 201205
  4. RECOMBINATE [Concomitant]
     Indication: HEMOPHILIA A
     Dates: end: 200503

REACTIONS (2)
  - Factor VIII inhibition [Recovering/Resolving]
  - Osteochondrosis [Unknown]
